FAERS Safety Report 25947146 (Version 1)
Quarter: 2025Q4

REPORT INFORMATION
  Report Type: Spontaneous
  Country: EU (occurrence: EU)
  Receive Date: 20251022
  Receipt Date: 20251022
  Transmission Date: 20260118
  Serious: Yes (Other)
  Sender: RANBAXY
  Company Number: EU-AFSSAPS-DJ2025001141

PATIENT
  Age: 57 Year
  Sex: Female

DRUGS (1)
  1. OMEPRAZOLE [Suspect]
     Active Substance: OMEPRAZOLE
     Indication: Abdominal pain upper
     Dosage: 1 DOSAGE FORM, DAILY
     Route: 048
     Dates: start: 202501, end: 202501

REACTIONS (1)
  - Epistaxis [Recovered/Resolved]

NARRATIVE: CASE EVENT DATE: 20250101
